FAERS Safety Report 8393343-0 (Version None)
Quarter: 2012Q2

REPORT INFORMATION
  Report Type: 
  Country: None (occurrence: None)
  Receive Date: 20120529
  Receipt Date: 20120523
  Transmission Date: 20120825
  Serious: Yes (Death, Hospitalization)
  Sender: FDA-Public Use
  Company Number: ES-JNJFOC-20120517927

PATIENT
  Age: 67 Year
  Sex: Male
  Weight: 104 kg

DRUGS (6)
  1. PREDNISONE [Concomitant]
     Indication: HIDRADENITIS
     Route: 065
  2. STELARA [Suspect]
     Indication: PYODERMA
     Route: 050
     Dates: start: 20120301, end: 20120401
  3. STELARA [Suspect]
     Route: 050
     Dates: start: 20120401
  4. OMEPRAZOLE [Concomitant]
     Indication: GASTROINTESTINAL DISORDER THERAPY
     Route: 065
  5. CALCIUM [Concomitant]
     Indication: HIDRADENITIS
     Route: 065
  6. SINTROM [Concomitant]
     Indication: PRODUCT USED FOR UNKNOWN INDICATION
     Route: 065
     Dates: start: 20110401, end: 20120401

REACTIONS (2)
  - EMBOLISM [None]
  - OFF LABEL USE [None]
